FAERS Safety Report 11439265 (Version 1)
Quarter: 2015Q3

REPORT INFORMATION
  Report Type: Spontaneous
  Country: JP (occurrence: None)
  Receive Date: 20150828
  Receipt Date: 20150828
  Transmission Date: 20151125
  Serious: Yes (Other)
  Sender: FDA-Public Use
  Company Number: JP-2015ARB000018

PATIENT
  Age: 64 Year
  Sex: Male
  Weight: 56 kg

DRUGS (1)
  1. CARMUSTINE [Suspect]
     Active Substance: CARMUSTINE
     Indication: OLIGOASTROCYTOMA
     Dosage: 7.7 MG, 8 TOTAL, INTRACEREBRAL
     Dates: start: 20130531

REACTIONS (4)
  - Brain oedema [None]
  - Condition aggravated [None]
  - Cyst [None]
  - Pneumocephalus [None]

NARRATIVE: CASE EVENT DATE: 20130604
